FAERS Safety Report 6695813-X (Version None)
Quarter: 2010Q2

REPORT INFORMATION
  Report Type: 
  Country: None (occurrence: None)
  Receive Date: 20100423
  Receipt Date: 20100423
  Transmission Date: 20101027
  Serious: Yes (Hospitalization)
  Sender: FDA-Public Use
  Company Number: None

PATIENT
  Sex: Female

DRUGS (1)
  1. FENTANYL [Suspect]
     Indication: PAIN
     Dosage: APPLY 1 PATCH EVERY 72 HOURS
     Dates: start: 20090301

REACTIONS (2)
  - PAIN [None]
  - PRODUCT ADHESION ISSUE [None]
